FAERS Safety Report 8372513-1 (Version None)
Quarter: 2012Q2

REPORT INFORMATION
  Report Type: 
  Country: None (occurrence: None)
  Receive Date: 20120521
  Receipt Date: 20120514
  Transmission Date: 20120825
  Serious: Yes (Other)
  Sender: FDA-Public Use
  Company Number: PHEH2012US010063

PATIENT
  Sex: Female

DRUGS (15)
  1. LANTUS [Concomitant]
     Indication: BLOOD INSULIN
     Dosage: 13 U, UNK
  2. VALIUM [Concomitant]
     Dosage: 5 MG, QD
  3. COREG [Concomitant]
     Indication: BLOOD PRESSURE
     Dosage: 3.125 MG, BID
     Route: 048
  4. FISH OIL [Concomitant]
     Dosage: 1000 MG, QD
     Route: 048
  5. LIPITOR [Concomitant]
     Indication: BLOOD CHOLESTEROL
     Dosage: 20 MG, QD
  6. BETHANECHOL CHLORIDE [Concomitant]
     Indication: BLADDER DISORDER
     Dosage: 25 MG, BID
     Route: 048
  7. RECLAST [Suspect]
     Indication: OSTEOPOROSIS
     Route: 042
  8. TRAMADOL HYDROCHLORIDE [Concomitant]
     Indication: PAIN
     Dosage: 50 MG, Q18H
     Route: 048
  9. VITAMIN D [Concomitant]
  10. GLIPIZIDE [Concomitant]
     Indication: DIABETES MELLITUS
     Dosage: 10 MG, BID
     Route: 048
  11. PRISTIQ [Concomitant]
     Indication: DEPRESSION
     Dosage: 100 MG, QD
     Route: 048
  12. LISINOPRIL [Concomitant]
     Indication: BLOOD PRESSURE
     Dosage: 5 MG, QD
     Route: 048
  13. PLAVIX [Concomitant]
     Indication: ANTICOAGULANT THERAPY
     Dosage: 75 MG, UNK
     Route: 048
  14. ZYRTEC [Concomitant]
     Indication: HYPERSENSITIVITY
  15. NAMENDA [Concomitant]
     Dosage: 10 MG, BID
     Route: 048

REACTIONS (3)
  - PAIN [None]
  - MONOPLEGIA [None]
  - GAIT DISTURBANCE [None]
